FAERS Safety Report 24158280 (Version 1)
Quarter: 2024Q3

REPORT INFORMATION
  Report Type: Spontaneous
  Country: US (occurrence: None)
  Receive Date: 20240731
  Receipt Date: 20240731
  Transmission Date: 20241017
  Serious: Yes (Death)
  Sender: Public
  Company Number: None

PATIENT
  Age: 80 Year
  Sex: Male
  Weight: 87.5 kg

DRUGS (1)
  1. PEMBROLIZUMAB [Suspect]
     Active Substance: PEMBROLIZUMAB
     Indication: Malignant melanoma
     Route: 042
     Dates: start: 20240620, end: 20240711

REACTIONS (6)
  - Hemiparesis [None]
  - Bell^s palsy [None]
  - Rhabdomyolysis [None]
  - Myocarditis [None]
  - Myositis [None]
  - Myasthenia gravis [None]

NARRATIVE: CASE EVENT DATE: 20240711
